FAERS Safety Report 5474683-1 (Version None)
Quarter: 2007Q4

REPORT INFORMATION
  Report Type: 
  Country: None (occurrence: None)
  Receive Date: 20071002
  Receipt Date: 20070927
  Transmission Date: 20080405
  Serious: Yes (Other)
  Sender: FDA-Public Use
  Company Number: PHMT2007CA01840

PATIENT
  Age: 60 Year
  Sex: Female

DRUGS (1)
  1. SANDOSTATIN LAR [Suspect]
     Indication: CARCINOID TUMOUR
     Dosage: 20MG EVERY 4 WEEKS
     Route: 030
     Dates: start: 20050727

REACTIONS (2)
  - HEPATIC NEOPLASM [None]
  - LIVER OPERATION [None]
